FAERS Safety Report 18817987 (Version 1)
Quarter: 2021Q1

REPORT INFORMATION
  Report Type: Spontaneous
  Country: US (occurrence: US)
  Receive Date: 20210201
  Receipt Date: 20210201
  Transmission Date: 20210419
  Serious: No
  Sender: FDA-Public Use
  Company Number: US-PFIZER INC-2021086280

PATIENT
  Age: 62 Year
  Sex: Female

DRUGS (5)
  1. PREDNISOLONE. [Concomitant]
     Active Substance: PREDNISOLONE
     Dosage: UNK (PREDNISOLONE 15 MG/5 ML SOLUTION)
  2. NITROGLYCERIN. [Concomitant]
     Active Substance: NITROGLYCERIN
     Dosage: 0.3 MG
     Route: 060
  3. SYNTHROID [Concomitant]
     Active Substance: LEVOTHYROXINE SODIUM
     Dosage: 100 UG
  4. INLYTA [Suspect]
     Active Substance: AXITINIB
     Indication: RENAL CANCER
     Dosage: 5 MG, 2X/DAY (1 TABLET ORALLY EVERY 12 HOURS)
     Route: 048
  5. PEPCID [Concomitant]
     Active Substance: FAMOTIDINE
     Dosage: 20 MG

REACTIONS (2)
  - Dyspnoea [Recovered/Resolved]
  - Rash [Not Recovered/Not Resolved]
